FAERS Safety Report 7945338-6 (Version None)
Quarter: 2011Q4

REPORT INFORMATION
  Report Type: 
  Country: None (occurrence: None)
  Receive Date: 20111129
  Receipt Date: 20110322
  Transmission Date: 20120403
  Serious: No
  Sender: FDA-Public Use
  Company Number: US-GLAXOSMITHKLINE-A0920366A

PATIENT
  Age: 63 Year
  Sex: Female

DRUGS (2)
  1. UNKNOWN [Concomitant]
  2. WELLBUTRIN SR [Suspect]
     Indication: PRODUCT USED FOR UNKNOWN INDICATION
     Dosage: 100MG UNKNOWN
     Route: 048
     Dates: start: 20110228

REACTIONS (1)
  - ABDOMINAL PAIN UPPER [None]
